FAERS Safety Report 5817976-8 (Version None)
Quarter: 2008Q3

REPORT INFORMATION
  Report Type: 
  Country: None (occurrence: None)
  Receive Date: 20080722
  Receipt Date: 20080628
  Transmission Date: 20090109
  Serious: No
  Sender: FDA-Public Use
  Company Number: US-BOEHRINGER INGELHEIM GMBH, GERMANY-2008-BP-10149BP

PATIENT
  Sex: Female

DRUGS (4)
  1. ZANTAC 75 [Suspect]
     Indication: GASTROOESOPHAGEAL REFLUX DISEASE
     Route: 048
     Dates: start: 20080628
  2. ZANTAC 75 [Suspect]
     Indication: APNOEA
  3. ZANTAC 75 [Suspect]
     Indication: DYSPEPSIA
  4. ZANTAC 75 [Suspect]

REACTIONS (1)
  - DYSPEPSIA [None]
